FAERS Safety Report 8479771-3 (Version None)
Quarter: 2012Q2

REPORT INFORMATION
  Report Type: 
  Country: None (occurrence: None)
  Receive Date: 20120629
  Receipt Date: 20120620
  Transmission Date: 20120825
  Serious: Yes (Hospitalization)
  Sender: FDA-Public Use
  Company Number: NL-MEDIMMUNE-MEDI-0011700

PATIENT
  Age: 2 Month
  Sex: Male
  Weight: 3.5 kg

DRUGS (2)
  1. SYNAGIS [Suspect]
     Dosage: 15 MG/KG ONCE MONTHLY - 52 MG AT 3460 G
     Route: 030
     Dates: start: 20101026, end: 20101026
  2. SYNAGIS [Suspect]
     Indication: ANTIVIRAL PROPHYLAXIS
     Dosage: 15 MG/KG ONCE MONTHLY - 41 MG AT 2610 G
     Route: 030
     Dates: start: 20101001, end: 20101001

REACTIONS (3)
  - NASOPHARYNGITIS [None]
  - RESPIRATORY SYNCYTIAL VIRUS TEST POSITIVE [None]
  - DYSPNOEA [None]
